FAERS Safety Report 16996295 (Version 1)
Quarter: 2019Q4

REPORT INFORMATION
  Report Type: Spontaneous
  Country: CA (occurrence: CA)
  Receive Date: 20191105
  Receipt Date: 20191105
  Transmission Date: 20200122
  Serious: Yes (Death)
  Sender: FDA-Public Use
  Company Number: CA-PFIZER INC-2019472052

PATIENT
  Age: 40 Year
  Sex: Male

DRUGS (10)
  1. GABAPENTIN. [Suspect]
     Active Substance: GABAPENTIN
     Dosage: UNK
  2. TRAMADOL HYDROCHLORIDE. [Interacting]
     Active Substance: TRAMADOL HYDROCHLORIDE
     Dosage: UNK
  3. ZOLPIDEM [Interacting]
     Active Substance: ZOLPIDEM TARTRATE
     Dosage: UNK
  4. DULOXETINE. [Interacting]
     Active Substance: DULOXETINE
     Dosage: UNK
  5. TRAZODONE [Interacting]
     Active Substance: TRAZODONE HYDROCHLORIDE
     Dosage: UNK
  6. DICLOFENAC SODIUM. [Concomitant]
     Active Substance: DICLOFENAC SODIUM
     Dosage: UNK
  7. RAMIPRIL. [Concomitant]
     Active Substance: RAMIPRIL
     Dosage: UNK
  8. ABILIFY [Interacting]
     Active Substance: ARIPIPRAZOLE
     Dosage: UNK
  9. PRAZOSIN. [Concomitant]
     Active Substance: PRAZOSIN
     Dosage: UNK
  10. MIRTAZAPINE. [Interacting]
     Active Substance: MIRTAZAPINE
     Dosage: UNK

REACTIONS (11)
  - Drug interaction [Fatal]
  - Sleep disorder [Fatal]
  - Sudden cardiac death [Fatal]
  - Nausea [Fatal]
  - Antidepressant drug level above therapeutic [Fatal]
  - Vomiting [Fatal]
  - Analgesic drug level above therapeutic [Fatal]
  - Decreased appetite [Fatal]
  - Electrocardiogram QT prolonged [Fatal]
  - Oropharyngeal pain [Fatal]
  - Pulmonary congestion [Fatal]
